FAERS Safety Report 8687469 (Version 16)
Quarter: 2015Q2

REPORT INFORMATION
  Report Type: Spontaneous
  Country: IE (occurrence: IE)
  Receive Date: 20120727
  Receipt Date: 20150413
  Transmission Date: 20150821
  Serious: Yes (Other)
  Sender: FDA-Public Use
  Company Number: PHFR2011IE03891

PATIENT
  Age: 54 Year
  Sex: Female

DRUGS (11)
  1. BISOPROLOL [Concomitant]
     Active Substance: BISOPROLOL
     Indication: HYPERTENSION
     Dosage: 2.5 MG
     Route: 048
     Dates: start: 20080912
  2. PRAVASTATIN [Concomitant]
     Active Substance: PRAVASTATIN\PRAVASTATIN SODIUM
     Indication: HYPERLIPIDAEMIA
     Dosage: 40 MG
     Route: 048
     Dates: start: 20080912
  3. L-THYROXINE [Concomitant]
     Active Substance: LEVOTHYROXINE
     Indication: HYPOTHYROIDISM
     Dosage: UNK
     Route: 065
  4. LOSEC [Concomitant]
     Active Substance: OMEPRAZOLE
     Indication: DYSPEPSIA
  5. LOSEC [Concomitant]
     Active Substance: OMEPRAZOLE
     Indication: GASTROOESOPHAGEAL REFLUX DISEASE
     Dosage: 40 MG
     Route: 048
     Dates: start: 20080912
  6. BISOPROLOL [Concomitant]
     Active Substance: BISOPROLOL
     Indication: SINUS TACHYCARDIA
  7. CLOZARIL [Suspect]
     Active Substance: CLOZAPINE
     Dosage: 400 MG
     Route: 048
     Dates: start: 20110530
  8. GALFER [Concomitant]
     Active Substance: IRON
     Indication: ANAEMIA
     Dosage: 10 ML
     Route: 048
     Dates: start: 20050912
  9. CLOZARIL [Suspect]
     Active Substance: CLOZAPINE
     Indication: SCHIZOPHRENIA
     Dosage: UNK
     Route: 048
     Dates: start: 20080814
  10. CLOZARIL [Suspect]
     Active Substance: CLOZAPINE
     Dosage: 375 MG
     Route: 048
  11. FERROUS SULFATE [Concomitant]
     Active Substance: FERROUS SULFATE\FERROUS SULFATE, DRIED
     Indication: PRODUCT USED FOR UNKNOWN INDICATION
     Route: 065

REACTIONS (2)
  - Differential white blood cell count abnormal [Not Recovered/Not Resolved]
  - Eosinophil count increased [Not Recovered/Not Resolved]

NARRATIVE: CASE EVENT DATE: 20110627
